FAERS Safety Report 5786887-9 (Version None)
Quarter: 2008Q2

REPORT INFORMATION
  Report Type: 
  Country: None (occurrence: None)
  Receive Date: 20080625
  Receipt Date: 20080619
  Transmission Date: 20081010
  Serious: Yes (Hospitalization)
  Sender: FDA-Public Use
  Company Number: CA-WYE-G01242508

PATIENT
  Age: 79 Year
  Sex: Male

DRUGS (6)
  1. EFFEXOR XR [Interacting]
     Indication: DEPRESSION
     Route: 048
     Dates: start: 20080226
  2. TERAZOSIN HCL [Suspect]
     Route: 048
     Dates: end: 20080313
  3. AMIODARONE HCL [Suspect]
     Indication: ATRIAL FIBRILLATION
     Route: 048
     Dates: start: 20060101, end: 20080313
  4. METOPROLOL TARTRATE [Interacting]
     Indication: ATRIAL FIBRILLATION
     Dates: start: 20060101, end: 20080311
  5. ZOPICLONE [Concomitant]
     Indication: SLEEP DISORDER
     Dates: start: 20080226
  6. LISINOPRIL [Concomitant]
     Indication: HYPERTENSION
     Dates: start: 20060101

REACTIONS (5)
  - BRADYCARDIA [None]
  - DRUG INTERACTION [None]
  - DRUG LEVEL INCREASED [None]
  - ORTHOSTATIC HYPOTENSION [None]
  - SYNCOPE [None]
